FAERS Safety Report 25145522 (Version 1)
Quarter: 2025Q2

REPORT INFORMATION
  Report Type: Spontaneous
  Country: CN (occurrence: CN)
  Receive Date: 20250401
  Receipt Date: 20250401
  Transmission Date: 20250717
  Serious: Yes (Life-Threatening, Other)
  Sender: PFIZER
  Company Number: CN-PFIZER INC-PV202500037162

PATIENT
  Age: 76 Year
  Sex: Male

DRUGS (4)
  1. PIPERACILLIN SODIUM\TAZOBACTAM SODIUM [Suspect]
     Active Substance: PIPERACILLIN SODIUM\TAZOBACTAM SODIUM
     Indication: Psoriasis
  2. PIPERACILLIN SODIUM\TAZOBACTAM SODIUM [Suspect]
     Active Substance: PIPERACILLIN SODIUM\TAZOBACTAM SODIUM
     Indication: Antiallergic therapy
  3. CEFUROXIME [Suspect]
     Active Substance: CEFUROXIME
     Indication: Psoriasis
  4. CEFUROXIME [Suspect]
     Active Substance: CEFUROXIME
     Indication: Antiallergic therapy

REACTIONS (1)
  - Drug ineffective [Unknown]
